FAERS Safety Report 9277499 (Version 1)
Quarter: 2013Q2

REPORT INFORMATION
  Report Type: Spontaneous
  Country: US (occurrence: US)
  Receive Date: 20130508
  Receipt Date: 20130508
  Transmission Date: 20140414
  Serious: Yes (Hospitalization)
  Sender: FDA-Public Use
  Company Number: US-MYLANLABS-2013S1009134

PATIENT
  Sex: Female
  Weight: 65.77 kg

DRUGS (5)
  1. DILTIAZEM [Suspect]
     Indication: BLOOD PRESSURE INCREASED
     Route: 048
     Dates: end: 2011
  2. DILTIAZEM [Suspect]
     Indication: OFF LABEL USE
     Route: 048
     Dates: end: 2011
  3. VITAMIN D3 [Suspect]
     Route: 048
     Dates: end: 2011
  4. TENORMIN [Concomitant]
  5. DIOVAN [Concomitant]

REACTIONS (3)
  - Blood pressure increased [Recovered/Resolved]
  - Heart rate increased [Recovered/Resolved]
  - Drug interaction [Recovered/Resolved]
